FAERS Safety Report 10153397 (Version 1)
Quarter: 2014Q2

REPORT INFORMATION
  Report Type: Spontaneous
  Country: US (occurrence: US)
  Receive Date: 20140505
  Receipt Date: 20140505
  Transmission Date: 20141212
  Serious: No
  Sender: FDA-Public Use
  Company Number: US-ASTRAZENECA-2013SE68415

PATIENT
  Age: 52 Year
  Sex: Female
  Weight: 78.9 kg

DRUGS (10)
  1. PRILOSEC [Suspect]
     Indication: GASTRITIS
     Route: 048
     Dates: start: 2011, end: 2012
  2. PRILOSEC [Suspect]
     Indication: GASTROOESOPHAGEAL REFLUX DISEASE
     Route: 048
     Dates: start: 2011, end: 2012
  3. METFORMIN [Concomitant]
     Indication: DIABETES MELLITUS
     Route: 048
     Dates: start: 2011
  4. GLYBURIDE [Concomitant]
     Indication: DIABETES MELLITUS
     Route: 048
     Dates: start: 2012
  5. VICODAN [Concomitant]
     Indication: BACK PAIN
     Dosage: PRN
     Route: 048
     Dates: start: 2011
  6. VICODAN [Concomitant]
     Indication: MIGRAINE
     Dosage: PRN
     Route: 048
     Dates: start: 2011
  7. SIMVASTATIN [Concomitant]
     Indication: BLOOD CHOLESTEROL INCREASED
     Route: 048
     Dates: start: 2011
  8. CARVEDILOL [Concomitant]
     Indication: HYPERTENSION
     Route: 048
     Dates: start: 2011
  9. IRON FERROUS FOLATE [Concomitant]
     Indication: MINERAL SUPPLEMENTATION
     Dosage: TID
     Route: 048
     Dates: start: 201303
  10. MVI [Concomitant]
     Indication: SUPPLEMENTATION THERAPY
     Dosage: 1 DAILY
     Route: 048
     Dates: start: 2012

REACTIONS (9)
  - Diabetes mellitus [Not Recovered/Not Resolved]
  - Hypertension [Not Recovered/Not Resolved]
  - Blood cholesterol increased [Not Recovered/Not Resolved]
  - Polyp [Recovered/Resolved]
  - Neuropathy peripheral [Not Recovered/Not Resolved]
  - Migraine [Not Recovered/Not Resolved]
  - Hypoaesthesia [Not Recovered/Not Resolved]
  - Intentional product misuse [Unknown]
  - Off label use [Unknown]
